FAERS Safety Report 4672904-6 (Version None)
Quarter: 2005Q2

REPORT INFORMATION
  Report Type: 
  Country: None (occurrence: None)
  Receive Date: 20050523
  Receipt Date: 20050511
  Transmission Date: 20051028
  Serious: Yes (Hospitalization)
  Sender: FDA-Public Use
  Company Number: HQWYE737616MAY05

PATIENT
  Age: 24 Year
  Sex: Male
  Weight: 109 kg

DRUGS (1)
  1. RAPAMUNE [Suspect]
     Indication: PROPHYLAXIS AGAINST TRANSPLANT REJECTION
     Dosage: 5 MG 1X PER 1 DAY ORAL
     Route: 048
     Dates: start: 20050507

REACTIONS (4)
  - BLOOD PRESSURE DECREASED [None]
  - KIDNEY TRANSPLANT REJECTION [None]
  - RENAL VEIN THROMBOSIS [None]
  - URINE OUTPUT DECREASED [None]
